FAERS Safety Report 4904585-8 (Version None)
Quarter: 2006Q1

REPORT INFORMATION
  Report Type: 
  Country: None (occurrence: None)
  Receive Date: 20060208
  Receipt Date: 20060130
  Transmission Date: 20060701
  Serious: Yes (Hospitalization)
  Sender: FDA-Public Use
  Company Number: IT-ROCHE-434077

PATIENT
  Age: 65 Year
  Sex: Male

DRUGS (1)
  1. ROCEPHIN [Suspect]
     Indication: PROPHYLAXIS
     Dosage: FORM WAS REPORTED AS VIAL.
     Route: 030
     Dates: start: 20060122, end: 20060124

REACTIONS (1)
  - ANGIONEUROTIC OEDEMA [None]
